FAERS Safety Report 11801886 (Version 3)
Quarter: 2015Q4

REPORT INFORMATION
  Report Type: Spontaneous
  Country: IT (occurrence: IT)
  Receive Date: 20151204
  Receipt Date: 20151209
  Transmission Date: 20160305
  Serious: Yes (Hospitalization, Other)
  Sender: FDA-Public Use
  Company Number: IT-WATSON-2015-26089

PATIENT
  Age: 67 Year
  Sex: Male

DRUGS (1)
  1. LOSARTAN (UNKNOWN) [Suspect]
     Active Substance: LOSARTAN
     Indication: PRODUCT USED FOR UNKNOWN INDICATION
     Dosage: 50 MG/DAY
     Route: 065

REACTIONS (1)
  - Malabsorption [Recovered/Resolved]
